FAERS Safety Report 4470909-1 (Version None)
Quarter: 2004Q4

REPORT INFORMATION
  Report Type: 
  Country: None (occurrence: None)
  Receive Date: 20041011
  Receipt Date: 20040930
  Transmission Date: 20050328
  Serious: Yes (Other)
  Sender: FDA-Public Use
  Company Number: PHBS2004AR13121

PATIENT
  Age: 71 Year
  Sex: Female

DRUGS (3)
  1. ZELMAC [Suspect]
     Indication: CONSTIPATION
     Dosage: 6 MG, QD
     Route: 065
     Dates: start: 20040901, end: 20040901
  2. CLONAZEPAM [Concomitant]
     Route: 065
  3. ATORVASTATIN CALCIUM [Concomitant]
     Dosage: 10 MG
     Route: 065

REACTIONS (2)
  - ABDOMINAL PAIN [None]
  - DIARRHOEA [None]
